FAERS Safety Report 9287049 (Version 1)
Quarter: 2013Q2

REPORT INFORMATION
  Report Type: Spontaneous
  Country: US (occurrence: US)
  Receive Date: 20130513
  Receipt Date: 20130513
  Transmission Date: 20140414
  Serious: No
  Sender: FDA-Public Use
  Company Number: US-ASTRAZENECA-2013SE30894

PATIENT
  Age: 62 Year
  Sex: Female
  Weight: 79.8 kg

DRUGS (4)
  1. TOPROL XL [Suspect]
     Indication: BLOOD PRESSURE ABNORMAL
     Route: 048
     Dates: end: 201209
  2. TOPROL XL [Suspect]
     Indication: BLOOD PRESSURE ABNORMAL
     Route: 048
     Dates: start: 201209, end: 20130430
  3. TOPROL XL [Suspect]
     Indication: BLOOD PRESSURE ABNORMAL
     Route: 048
     Dates: start: 20130430
  4. LEVOXYL [Concomitant]
     Indication: THYROID DISORDER
     Route: 048

REACTIONS (6)
  - Thyroid disorder [Unknown]
  - Blood pressure increased [Unknown]
  - Visual field defect [Unknown]
  - Visual impairment [Unknown]
  - Intentional drug misuse [Unknown]
  - Drug ineffective [Unknown]
